FAERS Safety Report 9304418 (Version 5)
Quarter: 2014Q2

REPORT INFORMATION
  Report Type: Report from Study
  Country: US (occurrence: US)
  Receive Date: 20130522
  Receipt Date: 20140421
  Transmission Date: 20141212
  Serious: Yes (Life-Threatening, Hospitalization)
  Sender: FDA-Public Use
  Company Number: US-US-EMD SERONO, INC.-7212314

PATIENT
  Age: 40 Year
  Sex: Female
  Weight: 62 kg

DRUGS (11)
  1. REBIF [Suspect]
     Indication: MULTIPLE SCLEROSIS
     Route: 058
     Dates: start: 20130209, end: 20130405
  2. REBIF [Suspect]
     Route: 058
     Dates: start: 20130506
  3. IBUPROFEN [Concomitant]
     Indication: PRODUCT USED FOR UNKNOWN INDICATION
  4. NEURONTIN [Concomitant]
     Indication: MUSCLE SPASTICITY
     Dosage: 1AM, 3 PM, AND 1 AT BED TIME
     Route: 048
  5. NEURONTIN [Concomitant]
     Indication: NEURALGIA
     Route: 048
  6. MINOCIN [Concomitant]
     Indication: PRODUCT USED FOR UNKNOWN INDICATION
     Route: 048
  7. NAPROSYN                           /00256201/ [Concomitant]
     Indication: PRODUCT USED FOR UNKNOWN INDICATION
     Dosage: AS REQUIRED
     Route: 048
  8. VALTREX [Concomitant]
     Indication: PRODUCT USED FOR UNKNOWN INDICATION
     Route: 048
  9. CLARITIN                           /00917501/ [Concomitant]
     Indication: PRODUCT USED FOR UNKNOWN INDICATION
     Route: 048
  10. ULTRAM [Concomitant]
     Indication: PRODUCT USED FOR UNKNOWN INDICATION
     Dosage: EVERY 4-6 HOURS AS NEEDED
     Route: 048
  11. BACLOFEN [Concomitant]
     Indication: MUSCLE SPASTICITY
     Route: 048

REACTIONS (7)
  - Cardiac arrest [Unknown]
  - Respiratory failure [Unknown]
  - Gastrointestinal ulcer haemorrhage [Recovered/Resolved]
  - Syncope [Unknown]
  - Metabolic acidosis [Unknown]
  - Asthenia [Not Recovered/Not Resolved]
  - Fatigue [Not Recovered/Not Resolved]
